FAERS Safety Report 23513811 (Version 2)
Quarter: 2024Q1

REPORT INFORMATION
  Report Type: Report from Study
  Country: ES (occurrence: ES)
  Receive Date: 20240212
  Receipt Date: 20240326
  Transmission Date: 20240409
  Serious: Yes (Disabling)
  Sender: FDA-Public Use
  Company Number: ES-TEVA-VS-3154442

PATIENT
  Age: 84 Year
  Sex: Female

DRUGS (11)
  1. TERIPARATIDE [Suspect]
     Active Substance: TERIPARATIDE
     Indication: Osteoporosis
     Dosage: 20MCG/80MCL
     Route: 065
     Dates: start: 20231222
  2. FERROUS GLUCONATE [Concomitant]
     Active Substance: FERROUS GLUCONATE
     Indication: Iron deficiency
  3. PREGABALIN [Concomitant]
     Active Substance: PREGABALIN
     Indication: Neuralgia
  4. NALOXONE HYDROCHLORIDE\OXYCODONE HYDROCHLORIDE [Concomitant]
     Active Substance: NALOXONE HYDROCHLORIDE\OXYCODONE HYDROCHLORIDE
     Indication: Pain
  5. FUROSEMIDE [Concomitant]
     Active Substance: FUROSEMIDE
     Indication: Diuretic therapy
  6. CALCIUM CARBONATE\CHOLECALCIFEROL [Concomitant]
     Active Substance: CALCIUM CARBONATE\CHOLECALCIFEROL
     Indication: Osteoporosis
  7. Abasaglar (insulin) [Concomitant]
     Indication: Type 1 diabetes mellitus
     Dosage: 15 UI
  8. PROLIA [Concomitant]
     Active Substance: DENOSUMAB
     Indication: Osteoporosis
     Dates: end: 20230822
  9. ASPIRIN [Concomitant]
     Active Substance: ASPIRIN
     Indication: Thrombosis
  10. ACETAMINOPHEN [Concomitant]
     Active Substance: ACETAMINOPHEN
     Indication: Diabetes mellitus
  11. DULOXETINE HYDROCHLORIDE [Concomitant]
     Active Substance: DULOXETINE HYDROCHLORIDE
     Indication: Anxiety
     Dosage: 1 IN THE MORNING AND 1 AT NIGHT

REACTIONS (1)
  - Vomiting [Not Recovered/Not Resolved]

NARRATIVE: CASE EVENT DATE: 20230101
